FAERS Safety Report 9633219 (Version 1)
Quarter: 2013Q4

REPORT INFORMATION
  Report Type: Spontaneous
  Country: US (occurrence: None)
  Receive Date: 20131018
  Receipt Date: 20131018
  Transmission Date: 20140711
  Serious: No
  Sender: FDA-Public Use
  Company Number: None

PATIENT
  Sex: Male
  Weight: 74.84 kg

DRUGS (1)
  1. TIZANIDINE [Suspect]
     Indication: PAIN
     Dosage: 1 PO
     Route: 048

REACTIONS (2)
  - Rash [None]
  - Blister [None]
